FAERS Safety Report 5808945-2 (Version None)
Quarter: 2008Q3

REPORT INFORMATION
  Report Type: 
  Country: None (occurrence: None)
  Receive Date: 20080710
  Receipt Date: 20080710
  Transmission Date: 20090109
  Serious: No
  Sender: FDA-Public Use
  Company Number: None

PATIENT
  Age: 53 Year
  Sex: Female
  Weight: 90.7194 kg

DRUGS (1)
  1. SPIRIVA [Suspect]
     Indication: CHRONIC OBSTRUCTIVE PULMONARY DISEASE
     Dosage: 1 PUFF 1 TIME A DAY INHAL
     Route: 055
     Dates: start: 20060101, end: 20080301

REACTIONS (3)
  - CONSTIPATION [None]
  - HEART RATE INCREASED [None]
  - URINE OUTPUT DECREASED [None]
